FAERS Safety Report 12537474 (Version 1)
Quarter: 2016Q3

REPORT INFORMATION
  Report Type: Spontaneous
  Country: US (occurrence: US)
  Receive Date: 20160707
  Receipt Date: 20160707
  Transmission Date: 20161109
  Serious: Yes (Other)
  Sender: FDA-Public Use
  Company Number: US-SHENZHEN TECHDOW PHARMACEUTICAL CO. LTD-US-2016TEC0000020

PATIENT
  Age: 42 Year
  Sex: Male

DRUGS (1)
  1. HEPARIN SODIUM INJECTION USP, PRESERVATIVE FREE [Suspect]
     Active Substance: HEPARIN SODIUM
     Indication: CAROTID ARTERIAL EMBOLUS
     Dosage: UNK, DRIP

REACTIONS (8)
  - Cerebrovascular accident [Unknown]
  - Heparin-induced thrombocytopenia [Unknown]
  - Pulmonary embolism [Unknown]
  - Platelet count decreased [Unknown]
  - Pain in extremity [Unknown]
  - Peripheral coldness [Unknown]
  - Carotid artery occlusion [Unknown]
  - Arterial occlusive disease [Unknown]
